FAERS Safety Report 5980463-0 (Version None)
Quarter: 2008Q4

REPORT INFORMATION
  Report Type: 
  Country: None (occurrence: None)
  Receive Date: 20081205
  Receipt Date: 20071219
  Transmission Date: 20090506
  Serious: No
  Sender: FDA-Public Use
  Company Number: A0699675A

PATIENT
  Age: 51 Year
  Sex: Female

DRUGS (1)
  1. COMMIT [Suspect]

REACTIONS (2)
  - MOUTH ULCERATION [None]
  - PRODUCT QUALITY ISSUE [None]
